FAERS Safety Report 9788354 (Version 2)
Quarter: 2013Q4

REPORT INFORMATION
  Report Type: Other
  Country: US (occurrence: US)
  Receive Date: 20131230
  Receipt Date: 20131230
  Transmission Date: 20140711
  Serious: Yes (Other)
  Sender: FDA-Public Use
  Company Number: US-SHIRE-ALL1-2013-07769

PATIENT
  Age: 4 Year
  Sex: Female

DRUGS (2)
  1. VPRIV [Suspect]
     Indication: GAUCHER^S DISEASE
     Dosage: 1600 IU(4 VIALS), OTHER(BI-MONTHLY)
     Route: 041
     Dates: start: 20130805
  2. MIRALAX                            /00754501/ [Concomitant]
     Indication: PRODUCT USED FOR UNKNOWN INDICATION
     Dosage: 1 DF (1 CAP FUL), 1X/DAY:QD
     Route: 065

REACTIONS (2)
  - Petit mal epilepsy [Unknown]
  - Gastrooesophageal reflux disease [Unknown]
